FAERS Safety Report 24233899 (Version 2)
Quarter: 2024Q3

REPORT INFORMATION
  Report Type: Spontaneous
  Country: US (occurrence: US)
  Receive Date: 20240821
  Receipt Date: 20240827
  Transmission Date: 20241017
  Serious: Yes (Hospitalization, Other)
  Sender: SANOFI AVENTIS
  Company Number: US-SA-SAC20240820000782

PATIENT
  Age: 38 Year
  Sex: Female
  Weight: 108 kg

DRUGS (28)
  1. DUPIXENT [Suspect]
     Active Substance: DUPILUMAB
     Dosage: 300 MG, QOW
     Route: 058
  2. TRIKAFTA [Concomitant]
     Active Substance: ELEXACAFTOR\IVACAFTOR\TEZACAFTOR
  3. TRIKAFTA [Concomitant]
     Active Substance: ELEXACAFTOR\IVACAFTOR\TEZACAFTOR
  4. POSACONAZOLE [Concomitant]
     Active Substance: POSACONAZOLE
  5. POSACONAZOLE [Concomitant]
     Active Substance: POSACONAZOLE
  6. CAYSTON [Concomitant]
     Active Substance: AZTREONAM
  7. CAYSTON [Concomitant]
     Active Substance: AZTREONAM
  8. XOLAIR [Concomitant]
     Active Substance: OMALIZUMAB
  9. XOLAIR [Concomitant]
     Active Substance: OMALIZUMAB
  10. LYUMJEV KWIKPEN [Concomitant]
     Active Substance: INSULIN LISPRO
  11. LYUMJEV KWIKPEN [Concomitant]
     Active Substance: INSULIN LISPRO
  12. ZITHROMAX [Concomitant]
     Active Substance: AZITHROMYCIN DIHYDRATE
  13. ZITHROMAX [Concomitant]
     Active Substance: AZITHROMYCIN DIHYDRATE
  14. ZINC [Concomitant]
     Active Substance: ZINC
  15. ZINC [Concomitant]
     Active Substance: ZINC
  16. XOPENEX HFA [Concomitant]
     Active Substance: LEVALBUTEROL TARTRATE
  17. XOPENEX HFA [Concomitant]
     Active Substance: LEVALBUTEROL TARTRATE
  18. VITAMIN D3 [Concomitant]
     Active Substance: CHOLECALCIFEROL
  19. VITAMIN D3 [Concomitant]
     Active Substance: CHOLECALCIFEROL
  20. VITAMIN B12 [Concomitant]
     Active Substance: CYANOCOBALAMIN
  21. VITAMIN B12 [Concomitant]
     Active Substance: CYANOCOBALAMIN
  22. PREDNISONE [Concomitant]
     Active Substance: PREDNISONE
  23. PREDNISONE [Concomitant]
     Active Substance: PREDNISONE
  24. MEPHYTON [Concomitant]
     Active Substance: PHYTONADIONE
  25. MEPHYTON [Concomitant]
     Active Substance: PHYTONADIONE
  26. COLISTIMETHATE [Concomitant]
     Active Substance: COLISTIMETHATE SODIUM
  27. COLISTIMETHATE [Concomitant]
     Active Substance: COLISTIMETHATE SODIUM
  28. VITAMINS NOS [Concomitant]
     Active Substance: VITAMINS
     Dosage: UNK, QD

REACTIONS (1)
  - Pulmonary haemorrhage [Unknown]

NARRATIVE: CASE EVENT DATE: 20240804
